FAERS Safety Report 9390277 (Version 2)
Quarter: 2013Q3

REPORT INFORMATION
  Report Type: Spontaneous
  Country: US (occurrence: US)
  Receive Date: 20130709
  Receipt Date: 20130925
  Transmission Date: 20140515
  Serious: No
  Sender: FDA-Public Use
  Company Number: US-009507513-1306USA012120

PATIENT
  Age: 24 Year
  Sex: Female

DRUGS (1)
  1. NEXPLANON [Suspect]
     Indication: CONTRACEPTION
     Dosage: ONE ROD EVERY THREE YEARS
     Route: 059
     Dates: start: 201302

REACTIONS (4)
  - Menstruation irregular [Not Recovered/Not Resolved]
  - Polymenorrhoea [Unknown]
  - Hypomenorrhoea [Unknown]
  - Amenorrhoea [Unknown]
